FAERS Safety Report 9005497 (Version 2)
Quarter: 2013Q1

REPORT INFORMATION
  Report Type: Report from Study
  Country: DK (occurrence: DK)
  Receive Date: 20130109
  Receipt Date: 20130118
  Transmission Date: 20140127
  Serious: Yes (Death, Hospitalization)
  Sender: FDA-Public Use
  Company Number: DK-PFIZER INC-2013003500

PATIENT
  Age: 47 Year
  Sex: Male
  Weight: 74 kg

DRUGS (27)
  1. MORPHINE SULFATE [Suspect]
     Route: 065
  2. PREGABALIN [Suspect]
     Indication: BACK PAIN
     Dosage: 50 MG, 1X/DAY
     Route: 065
     Dates: start: 20100810
  3. PREGABALIN [Suspect]
     Dosage: 100 MG, 1X/DAY
     Route: 065
     Dates: start: 20100813
  4. PREGABALIN [Suspect]
     Dosage: 220 MG, 1X/DAY
     Route: 065
     Dates: start: 20100817
  5. BEVACIZUMAB [Suspect]
     Dosage: CONCURRENT PHASE DOSE BLINDED (1 IN 2 WK)
     Route: 042
     Dates: start: 20091120, end: 20091230
  6. BEVACIZUMAB [Suspect]
     Dosage: DOSE BLINDED. MAINTAINANCE PHASE (1 IN 2 WK)
     Route: 042
     Dates: start: 20100128, end: 20100825
  7. BEVACIZUMAB [Suspect]
     Dosage: UNK
     Route: 042
     Dates: end: 20100915
  8. BEVACIZUMAB [Suspect]
     Dosage: 1 IN 2 WK
     Route: 042
     Dates: end: 20101006
  9. BEVACIZUMAB [Suspect]
     Dosage: 1 IN 2 WK
     Route: 042
     Dates: start: 20101020
  10. TEMOZOLOMIDE [Suspect]
     Dosage: UNK
     Route: 048
     Dates: start: 20091120, end: 20091230
  11. TEMOZOLOMIDE [Suspect]
     Dosage: UNK
     Route: 048
     Dates: start: 20100128
  12. OXYCODONE [Suspect]
     Indication: BACK PAIN
     Dosage: 120 MG, UNK
     Route: 065
     Dates: start: 20100421
  13. OXYCODONE [Suspect]
     Dosage: 180 MG, UNK
     Route: 065
     Dates: start: 20100810
  14. METHYLPREDNISOLONE [Concomitant]
     Dosage: 48 MG, UNK
     Dates: start: 20090817
  15. METHYLPREDNISOLONE [Concomitant]
     Dosage: 80 MG, UNK
     Dates: start: 20100819, end: 20100819
  16. METHYLPREDNISOLONE [Concomitant]
     Dosage: 64 MG, UNK
     Dates: start: 20100820
  17. LANSOPRAZOLE [Concomitant]
     Dosage: 30 MG, 1X/DAY
     Dates: start: 20091230
  18. MEDROL [Concomitant]
     Dosage: 20 MG, UNK
     Dates: start: 20100224, end: 20100401
  19. FRAGMIN [Concomitant]
     Dosage: 1 TDD: 15000 IE
     Dates: start: 20100310
  20. PAMOL [Concomitant]
     Dosage: 1 G, UNK
     Dates: start: 20090805
  21. PAMOL [Concomitant]
     Dosage: 2 TDD: 4 GRAM/240 MG
     Dates: start: 20100724
  22. MAGNESIA [Concomitant]
     Dosage: 1 G, UNK
     Dates: start: 2009
  23. SODIUM PICOSULFATE [Concomitant]
     Dosage: 10 GTT, 1X/DAY
     Dates: start: 20100901
  24. DALTEPARIN [Concomitant]
     Dosage: TDD: 2500 IE
     Dates: start: 20100916
  25. DALTEPARIN [Concomitant]
     Dosage: 12500 IE
     Dates: start: 20100921
  26. RISPERIDONE [Concomitant]
     Dosage: 0.5 MG, 1X/DAY
     Dates: start: 20100916
  27. DICLOFENAC [Concomitant]
     Dosage: 150 MG, 1X/DAY
     Dates: start: 20100902

REACTIONS (5)
  - Wound infection [Fatal]
  - Cyst [Unknown]
  - Somnolence [Recovered/Resolved]
  - Back pain [Recovered/Resolved]
  - Wound secretion [Recovered/Resolved]
